FAERS Safety Report 13138725 (Version 2)
Quarter: 2017Q1

REPORT INFORMATION
  Report Type: Spontaneous
  Country: US (occurrence: US)
  Receive Date: 20170123
  Receipt Date: 20170217
  Transmission Date: 20170428
  Serious: No
  Sender: FDA-Public Use
  Company Number: US-PFIZER INC-2017023880

PATIENT
  Age: 48 Year
  Sex: Female
  Weight: 68 kg

DRUGS (4)
  1. TRAMADOL. [Concomitant]
     Active Substance: TRAMADOL
     Indication: ARTHRITIS
     Dosage: 50 MG, 3-4 TIMES A DAY
     Route: 048
  2. SYNTHROID [Concomitant]
     Active Substance: LEVOTHYROXINE SODIUM
     Indication: THYROID DISORDER
     Dosage: 50 UG, 1X/DAY
     Route: 048
  3. PREDNISONE. [Concomitant]
     Active Substance: PREDNISONE
     Indication: ARTHRITIS
     Dosage: 1 MG, 1X/DAY
     Route: 048
  4. XELJANZ [Suspect]
     Active Substance: TOFACITINIB CITRATE
     Indication: RHEUMATOID ARTHRITIS
     Dosage: 5 MG, 2X/DAY
     Route: 048
     Dates: start: 20161223

REACTIONS (8)
  - Dyspnoea [Unknown]
  - Arthritis [Unknown]
  - Peripheral swelling [Recovered/Resolved]
  - Musculoskeletal stiffness [Unknown]
  - Condition aggravated [Unknown]
  - Pain in extremity [Recovered/Resolved]
  - Pain [Unknown]
  - Eye pain [Recovered/Resolved with Sequelae]

NARRATIVE: CASE EVENT DATE: 20161225
